FAERS Safety Report 17879958 (Version 1)
Quarter: 2020Q2

REPORT INFORMATION
  Report Type: Spontaneous
  Country: GB (occurrence: GB)
  Receive Date: 20200610
  Receipt Date: 20200610
  Transmission Date: 20200714
  Serious: Yes (Hospitalization)
  Sender: FDA-Public Use
  Company Number: GB-MYLANLABS-2020M1049871

PATIENT
  Sex: Female
  Weight: 111.2 kg

DRUGS (8)
  1. CLOZARIL [Suspect]
     Active Substance: CLOZAPINE
     Dosage: 50 MG 08:00 AND 175 MG 22:00
     Route: 048
     Dates: start: 20141219, end: 20200512
  2. HALOPERIDOL. [Concomitant]
     Active Substance: HALOPERIDOL
     Indication: AGGRESSION
     Dosage: 3MG PO/IM UP TO 2 TIMES DAILY AS REQUIRED
     Dates: start: 20200506, end: 20200514
  3. CLOZARIL [Suspect]
     Active Substance: CLOZAPINE
     Dosage: 100 MG 08:00 AND 250 MG 22:00
     Route: 048
     Dates: start: 20200512, end: 20200514
  4. CLOZARIL [Suspect]
     Active Substance: CLOZAPINE
     Indication: SCHIZOPHRENIA
     Dosage: UNK, QD
     Route: 048
     Dates: start: 20141209
  5. ZUCLOPENTHIXOL DECANOATE [Concomitant]
     Active Substance: ZUCLOPENTHIXOL DECANOATE
     Indication: AGGRESSION
     Dosage: 200 MILLIGRAM, QW
     Route: 030
     Dates: end: 20200512
  6. HALOPERIDOL. [Concomitant]
     Active Substance: HALOPERIDOL
     Dosage: 3MG PO/IM UP TO 4 TIMES DAILY AS REQUIRED
     Dates: start: 20200514, end: 20200519
  7. ZUCLOPENTHIXOL DECANOATE [Concomitant]
     Active Substance: ZUCLOPENTHIXOL DECANOATE
     Indication: AGITATION
     Dosage: 100 MILLIGRAM
     Route: 030
     Dates: start: 20200505
  8. HALOPERIDOL. [Concomitant]
     Active Substance: HALOPERIDOL
     Indication: AGITATION
     Dosage: 3MG PO/IM UP TO 3 TIMES DAILY AS REQUIRED
     Dates: start: 20200423, end: 20200506

REACTIONS (8)
  - Musculoskeletal stiffness [Recovering/Resolving]
  - Blood creatine phosphokinase increased [Recovering/Resolving]
  - Schizophrenia [Unknown]
  - Dyskinesia [Unknown]
  - Malaise [Recovering/Resolving]
  - Muscle rigidity [Recovering/Resolving]
  - Speech disorder [Unknown]
  - Lethargy [Recovering/Resolving]

NARRATIVE: CASE EVENT DATE: 20200423
